FAERS Safety Report 7435968-2 (Version None)
Quarter: 2011Q2

REPORT INFORMATION
  Report Type: 
  Country: None (occurrence: None)
  Receive Date: 20110425
  Receipt Date: 20110418
  Transmission Date: 20111010
  Serious: No
  Sender: FDA-Public Use
  Company Number: US-B.I. PHARMACEUTICALS,INC./RIDGEFIELD-2011-BP-11132BP

PATIENT
  Sex: Male

DRUGS (8)
  1. DILTIAZEM [Concomitant]
     Indication: ATRIAL FIBRILLATION
     Route: 048
  2. PRADAXA [Suspect]
     Indication: ATRIAL FIBRILLATION
     Dosage: 300 MG
     Route: 048
     Dates: start: 20110228
  3. SIMVASTATIN [Concomitant]
     Indication: BLOOD CHOLESTEROL INCREASED
     Route: 048
  4. LISINOPRIL [Concomitant]
     Indication: HYPERTENSION
     Route: 048
  5. XANAX [Concomitant]
     Route: 048
  6. ZOSYN [Concomitant]
     Route: 048
  7. SOTALOL HCL [Concomitant]
     Indication: ATRIAL FIBRILLATION
     Route: 048
     Dates: start: 20110228
  8. VITAMIN TAB [Concomitant]
     Route: 048

REACTIONS (4)
  - THROAT IRRITATION [None]
  - DYSGEUSIA [None]
  - OROPHARYNGEAL PAIN [None]
  - OESOPHAGEAL IRRITATION [None]
